FAERS Safety Report 21356413 (Version 1)
Quarter: 2022Q3

REPORT INFORMATION
  Report Type: Spontaneous
  Country: CN (occurrence: CN)
  Receive Date: 20220920
  Receipt Date: 20220920
  Transmission Date: 20221026
  Serious: Yes (Life-Threatening, Hospitalization, Other)
  Sender: FDA-Public Use
  Company Number: CN-PFIZER INC-PV202200065717

PATIENT
  Age: 50 Year
  Sex: Female

DRUGS (4)
  1. CYTARABINE [Suspect]
     Active Substance: CYTARABINE
     Indication: Acute myeloid leukaemia
     Dosage: 3.5 G, 2X/DAY
     Route: 041
     Dates: start: 20220819, end: 20220820
  2. CYTARABINE [Suspect]
     Active Substance: CYTARABINE
     Dosage: 3 G, 2X/DAY
     Route: 041
     Dates: start: 20220819, end: 20220820
  3. SODIUM CHLORIDE [Concomitant]
     Active Substance: SODIUM CHLORIDE
     Indication: Acute myeloid leukaemia
     Dosage: 500 ML, 2X/DAY
     Route: 041
     Dates: start: 20220819, end: 20220820
  4. SODIUM CHLORIDE [Concomitant]
     Active Substance: SODIUM CHLORIDE
     Dosage: 500 ML, 2X/DAY
     Route: 041
     Dates: start: 20220819, end: 20220820

REACTIONS (1)
  - Myelosuppression [Recovering/Resolving]

NARRATIVE: CASE EVENT DATE: 20220823
